FAERS Safety Report 26028270 (Version 2)
Quarter: 2025Q4

REPORT INFORMATION
  Report Type: Spontaneous
  Country: CN (occurrence: CN)
  Receive Date: 20251111
  Receipt Date: 20251124
  Transmission Date: 20260118
  Serious: Yes (Life-Threatening, Hospitalization, Other)
  Sender: PFIZER
  Company Number: CN-PFIZER INC-PV202500127885

PATIENT
  Age: 70 Year
  Sex: Female
  Weight: 71 kg

DRUGS (12)
  1. METHYLPREDNISOLONE SODIUM SUCCINATE [Suspect]
     Active Substance: METHYLPREDNISOLONE SODIUM SUCCINATE
     Indication: Anti-neutrophil cytoplasmic antibody positive vasculitis
     Dosage: 80 MG, 1X/DAY
     Route: 042
     Dates: start: 202312
  2. METHYLPREDNISOLONE SODIUM SUCCINATE [Suspect]
     Active Substance: METHYLPREDNISOLONE SODIUM SUCCINATE
     Dosage: 500 MG, DAILY
     Route: 042
     Dates: start: 202312
  3. CYCLOPHOSPHAMIDE [Concomitant]
     Active Substance: CYCLOPHOSPHAMIDE
     Indication: Anti-neutrophil cytoplasmic antibody positive vasculitis
     Dosage: 0.2 G, EVERY OTHER DAY
     Route: 042
     Dates: start: 202312
  4. CYCLOPHOSPHAMIDE [Concomitant]
     Active Substance: CYCLOPHOSPHAMIDE
     Dosage: 50 MG, EVERY OTHER DAY
     Route: 048
     Dates: start: 202312
  5. PREDNISONE [Concomitant]
     Active Substance: PREDNISONE
     Indication: Anti-neutrophil cytoplasmic antibody positive vasculitis
     Dosage: 55 MG, DAILY (0.8 MG/KG/D)
     Route: 048
     Dates: start: 202312
  6. PREDNISONE [Concomitant]
     Active Substance: PREDNISONE
     Dosage: 40 MG, DAILY (REDUCED)
     Route: 048
     Dates: start: 202312
  7. PREDNISONE [Concomitant]
     Active Substance: PREDNISONE
     Dosage: TAPERED TO 30 MG, 1X/DAY
     Route: 048
     Dates: start: 202401
  8. ROXADUSTAT [Concomitant]
     Active Substance: ROXADUSTAT
     Dosage: UNK
     Dates: start: 202312
  9. SODIUM BICARBONATE [Concomitant]
     Active Substance: SODIUM BICARBONATE
     Dosage: UNK
     Dates: start: 202312
  10. PANTOPRAZOLE [Concomitant]
     Active Substance: PANTOPRAZOLE
     Dosage: UNK
     Dates: start: 202312
  11. TRANEXAMIC ACID [Concomitant]
     Active Substance: TRANEXAMIC ACID
     Dosage: UNK
     Dates: start: 202312
  12. OCTREOTIDE [Concomitant]
     Active Substance: OCTREOTIDE
     Dosage: INFUSION
     Dates: start: 202312

REACTIONS (2)
  - Cytomegalovirus colitis [Recovered/Resolved]
  - Off label use [Unknown]

NARRATIVE: CASE EVENT DATE: 20231201
